FAERS Safety Report 7109471-3 (Version None)
Quarter: 2010Q4

REPORT INFORMATION
  Report Type: 
  Country: None (occurrence: None)
  Receive Date: 20101118
  Receipt Date: 20101108
  Transmission Date: 20110411
  Serious: No
  Sender: FDA-Public Use
  Company Number: US-BIOGENIDEC-2010BI039663

PATIENT
  Age: 48 Year
  Sex: Female

DRUGS (1)
  1. TYSABRI [Suspect]
     Indication: MULTIPLE SCLEROSIS
     Route: 042
     Dates: start: 20061009, end: 20101018

REACTIONS (6)
  - BALANCE DISORDER [None]
  - BURNING SENSATION [None]
  - DIPLOPIA [None]
  - FALL [None]
  - MULTIPLE SCLEROSIS [None]
  - VISION BLURRED [None]
